FAERS Safety Report 25874609 (Version 3)
Quarter: 2025Q4

REPORT INFORMATION
  Report Type: Report from Study
  Country: JP (occurrence: JP)
  Receive Date: 20251002
  Receipt Date: 20251218
  Transmission Date: 20260118
  Serious: Yes (Other)
  Sender: ELI LILLY AND COMPANY
  Company Number: JP-ELI_LILLY_AND_COMPANY-JP202509027677

PATIENT
  Age: 84 Year
  Sex: Male
  Weight: 57.8 kg

DRUGS (2)
  1. KISUNLA [Suspect]
     Active Substance: DONANEMAB-AZBT
     Indication: Dementia Alzheimer^s type
     Dosage: 700 MG, OTHER
     Route: 041
     Dates: start: 20250704, end: 20250926
  2. REMINYL [Concomitant]
     Active Substance: GALANTAMINE
     Indication: Dementia Alzheimer^s type
     Dosage: 12 MG

REACTIONS (1)
  - Anaphylactic shock [Recovering/Resolving]

NARRATIVE: CASE EVENT DATE: 20250925
